FAERS Safety Report 5497923-1 (Version None)
Quarter: 2007Q4

REPORT INFORMATION
  Report Type: 
  Country: None (occurrence: None)
  Receive Date: 20071025
  Receipt Date: 20070911
  Transmission Date: 20080405
  Serious: Yes (Disabling)
  Sender: FDA-Public Use
  Company Number: US-SANOFI-SYNTHELABO-A03200703815

PATIENT
  Sex: Male
  Weight: 108.9 kg

DRUGS (9)
  1. ZOCOR [Concomitant]
     Indication: DRUG USE FOR UNKNOWN INDICATION
     Dosage: UNK
     Route: 048
  2. WELLBUTRIN XL [Concomitant]
     Indication: DRUG USE FOR UNKNOWN INDICATION
     Dosage: UNK
     Route: 048
  3. NIFEDIPINE [Concomitant]
     Indication: DRUG USE FOR UNKNOWN INDICATION
     Dosage: UNK
     Route: 048
  4. LUNESTA [Concomitant]
     Indication: DRUG USE FOR UNKNOWN INDICATION
     Dosage: UNK
     Route: 048
  5. SONATA [Concomitant]
     Indication: DRUG USE FOR UNKNOWN INDICATION
     Dosage: UNK
     Route: 048
  6. PAXIL [Concomitant]
     Indication: DRUG USE FOR UNKNOWN INDICATION
     Dosage: UNK
     Route: 048
  7. AMBIEN [Suspect]
     Indication: INSOMNIA
     Dosage: UNK
     Route: 048
     Dates: start: 20000401, end: 20000401
  8. AMBIEN [Suspect]
     Indication: DEPRESSION
     Dosage: UNK
     Route: 048
     Dates: start: 20000401, end: 20000401
  9. AMBIEN CR [Suspect]
     Indication: SLEEP APNOEA SYNDROME
     Dosage: UNK
     Route: 048
     Dates: start: 20010601, end: 20010601

REACTIONS (7)
  - AMNESIA [None]
  - DREAMY STATE [None]
  - DRUG INEFFECTIVE [None]
  - EATING DISORDER [None]
  - IMPAIRED DRIVING ABILITY [None]
  - SLEEP APNOEA SYNDROME [None]
  - SOMNAMBULISM [None]
